FAERS Safety Report 17290997 (Version 6)
Quarter: 2025Q2

REPORT INFORMATION
  Report Type: Spontaneous
  Country: FR (occurrence: FR)
  Receive Date: 20200121
  Receipt Date: 20250402
  Transmission Date: 20250716
  Serious: Yes (Hospitalization, Other)
  Sender: BAYER
  Company Number: FR-BAYER-200610227BFR

PATIENT
  Age: 45 Year
  Sex: Male

DRUGS (11)
  1. MOXIFLOXACIN HYDROCHLORIDE [Suspect]
     Active Substance: MOXIFLOXACIN HYDROCHLORIDE
     Indication: Sinusitis
     Dosage: 400 MG, QD
     Route: 048
     Dates: start: 20060204, end: 20060210
  2. BACTRIM [Concomitant]
     Active Substance: SULFAMETHOXAZOLE\TRIMETHOPRIM
     Indication: Genital odour
     Dates: start: 201903
  3. ACETYLCYSTEINE\BENZALKONIUM CHLORIDE\TUAMINOHEPTANE SULFATE [Concomitant]
     Active Substance: ACETYLCYSTEINE\BENZALKONIUM CHLORIDE\TUAMINOHEPTANE SULFATE
     Indication: Sinusitis
     Dates: start: 20060204
  4. DOLIPRANE [Concomitant]
     Active Substance: ACETAMINOPHEN
     Indication: Sinusitis
     Dates: start: 20060204
  5. AUGMENTIN [Concomitant]
     Active Substance: AMOXICILLIN\CLAVULANATE POTASSIUM
  6. Solupred [Concomitant]
     Dates: start: 20060207
  7. KETOPROFEN [Concomitant]
     Active Substance: KETOPROFEN
  8. CEFUROXIME [Concomitant]
     Active Substance: CEFUROXIME
  9. DULOXETINE [Concomitant]
     Active Substance: DULOXETINE
  10. AMITRIPTYLINE HYDROCHLORIDE [Concomitant]
     Active Substance: AMITRIPTYLINE HYDROCHLORIDE
  11. MIANSERIN HYDROCHLORIDE [Concomitant]
     Active Substance: MIANSERIN HYDROCHLORIDE

REACTIONS (74)
  - Hallucination [None]
  - Myalgia [Unknown]
  - Altered state of consciousness [None]
  - Seizure [None]
  - Rectal haemorrhage [None]
  - Haematochezia [Recovered/Resolved]
  - Choking [None]
  - Malaise [Recovered/Resolved]
  - Nausea [Recovered/Resolved]
  - Decreased appetite [Recovered/Resolved]
  - Weight decreased [Not Recovered/Not Resolved]
  - Abdominal pain [Recovered/Resolved]
  - Flatulence [None]
  - Oral fungal infection [Not Recovered/Not Resolved]
  - Tachycardia [None]
  - Palpitations [None]
  - Muscle spasms [Unknown]
  - Muscular weakness [None]
  - Vertigo [None]
  - Tremor [Recovered/Resolved]
  - Tremor [Recovered/Resolved]
  - Drug ineffective [None]
  - Hypotension [Unknown]
  - Drug intolerance [None]
  - Dizziness [Recovered/Resolved]
  - Motion sickness [None]
  - Food intolerance [Recovered/Resolved]
  - Chronic sinusitis [None]
  - Muscle atrophy [None]
  - Metabolic disorder [None]
  - Fibromyalgia [None]
  - Constipation [Recovered/Resolved]
  - Gastrooesophageal reflux disease [None]
  - Arthralgia [Recovered/Resolved]
  - Fatigue [None]
  - Night sweats [None]
  - Sleep disorder [None]
  - Asthenia [None]
  - Headache [None]
  - Suffocation feeling [None]
  - Hypersensitivity [None]
  - Mental disorder [None]
  - Photophobia [None]
  - Muscle contractions involuntary [None]
  - Skin discolouration [None]
  - Rash macular [None]
  - Tendonitis [None]
  - Pain in extremity [None]
  - Pain in extremity [None]
  - Paraesthesia [None]
  - Hypoaesthesia [None]
  - Muscle spasms [None]
  - Abdominal distension [None]
  - Jaundice [None]
  - Functional gastrointestinal disorder [None]
  - Candida infection [None]
  - Tinnitus [None]
  - Abdominal discomfort [None]
  - General physical health deterioration [Not Recovered/Not Resolved]
  - Back pain [None]
  - Dyspepsia [None]
  - Tetany [None]
  - Disturbance in attention [None]
  - Visual impairment [Recovered/Resolved]
  - Muscle disorder [Recovered/Resolved]
  - Tendon disorder [Recovered/Resolved]
  - Tremor [Recovered/Resolved]
  - Fungal infection [Recovered/Resolved]
  - Anaemia [Recovered/Resolved]
  - Eructation [Recovered/Resolved]
  - Faeces hard [Recovered/Resolved]
  - Anorectal discomfort [Recovered/Resolved]
  - Chromaturia [Recovered/Resolved]
  - Balance disorder [Recovered/Resolved]

NARRATIVE: CASE EVENT DATE: 20060201
